FAERS Safety Report 12542934 (Version 4)
Quarter: 2016Q3

REPORT INFORMATION
  Report Type: Spontaneous
  Country: US (occurrence: US)
  Receive Date: 20160710
  Receipt Date: 20160908
  Transmission Date: 20161109
  Serious: Yes (Other)
  Sender: FDA-Public Use
  Company Number: US-TEVA-674471USA

PATIENT
  Age: 53 Year
  Sex: Female

DRUGS (8)
  1. CLEARATIN [Concomitant]
  2. NEXIUM [Concomitant]
     Active Substance: ESOMEPRAZOLE MAGNESIUM
  3. COZAAR [Concomitant]
     Active Substance: LOSARTAN POTASSIUM
  4. MOBIC [Concomitant]
     Active Substance: MELOXICAM
  5. ZECUITY [Suspect]
     Active Substance: SUMATRIPTAN SUCCINATE
     Route: 062
     Dates: start: 201602, end: 201602
  6. ZECUITY [Suspect]
     Active Substance: SUMATRIPTAN SUCCINATE
     Route: 062
     Dates: start: 201606, end: 201606
  7. ZECUITY [Suspect]
     Active Substance: SUMATRIPTAN SUCCINATE
     Indication: MIGRAINE
     Route: 062
     Dates: start: 201601, end: 201601
  8. LIPITOR [Concomitant]
     Active Substance: ATORVASTATIN CALCIUM

REACTIONS (11)
  - Application site burn [Recovered/Resolved]
  - Application site paraesthesia [Recovered/Resolved]
  - Incorrect drug administration duration [Unknown]
  - Product adhesion issue [Unknown]
  - Application site irritation [Recovered/Resolved]
  - Application site discolouration [Recovered/Resolved]
  - Application site erythema [Recovered/Resolved]
  - Hot flush [Unknown]
  - Sunburn [Recovered/Resolved]
  - Application site pain [Recovered/Resolved]
  - Application site discomfort [Recovered/Resolved]

NARRATIVE: CASE EVENT DATE: 201602
